FAERS Safety Report 4988611-6 (Version None)
Quarter: 2006Q2

REPORT INFORMATION
  Report Type: 
  Country: None (occurrence: None)
  Receive Date: 20060502
  Receipt Date: 20050914
  Transmission Date: 20061013
  Serious: Yes (Disabling)
  Sender: FDA-Public Use
  Company Number: US-ROCHE-417933

PATIENT
  Age: 15 Year
  Sex: Male
  Weight: 99.8 kg

DRUGS (7)
  1. ACCUTANE [Suspect]
     Indication: ACNE
     Route: 048
     Dates: start: 20010415, end: 20020115
  2. COCAINE [Concomitant]
     Dates: start: 20000615, end: 20050615
  3. METHAMPHETAMINE HYDROCHLORIDE [Concomitant]
     Dates: start: 20000615, end: 20050615
  4. MARIJUANA [Concomitant]
     Dates: start: 20000615, end: 20050615
  5. ECSTASY [Concomitant]
     Dates: start: 20000615, end: 20050615
  6. PREDNISONE TAB [Concomitant]
  7. ZITHROMAX [Concomitant]

REACTIONS (17)
  - AFFECT LABILITY [None]
  - AGGRESSION [None]
  - ANGER [None]
  - AUTOMATISM [None]
  - DELIRIUM [None]
  - DELUSION [None]
  - DEPERSONALISATION [None]
  - DEPRESSION [None]
  - DISTURBANCE IN ATTENTION [None]
  - FEELINGS OF WORTHLESSNESS [None]
  - FLIGHT OF IDEAS [None]
  - GASTROINTESTINAL DISORDER [None]
  - HYPERTRIGLYCERIDAEMIA [None]
  - IMPULSE-CONTROL DISORDER [None]
  - INFLAMMATORY BOWEL DISEASE [None]
  - IRRITABLE BOWEL SYNDROME [None]
  - SELF ESTEEM DECREASED [None]
